FAERS Safety Report 25157414 (Version 1)
Quarter: 2025Q2

REPORT INFORMATION
  Report Type: Spontaneous
  Country: ZA (occurrence: ZA)
  Receive Date: 20250403
  Receipt Date: 20250403
  Transmission Date: 20250716
  Serious: Yes (Other)
  Sender: AMGEN
  Company Number: ZA-AMGEN-ZAFSP2025059340

PATIENT
  Age: 45 Year
  Sex: Female
  Weight: 93 kg

DRUGS (5)
  1. ADALIMUMAB [Suspect]
     Active Substance: ADALIMUMAB
     Indication: Product used for unknown indication
     Dosage: 40 MILLIGRAM, Q2WK
     Route: 058
     Dates: start: 20240119
  2. ENBREL [Suspect]
     Active Substance: ETANERCEPT
     Indication: Product used for unknown indication
     Dosage: 50 MILLIGRAM, QWK
     Route: 058
  3. RINVOQ [Concomitant]
     Active Substance: UPADACITINIB
     Dosage: 15 MILLIGRAM, QD
  4. COSENTYX [Concomitant]
     Active Substance: SECUKINUMAB
     Dates: start: 20250226
  5. SULFASALAZINE [Concomitant]
     Active Substance: SULFASALAZINE
     Dosage: 1 GRAM, BID
     Dates: start: 202102, end: 202110

REACTIONS (6)
  - Rheumatoid arthritis [Unknown]
  - Therapeutic product effect decreased [Unknown]
  - Enthesopathy [Unknown]
  - Hypertransaminasaemia [Unknown]
  - Headache [Unknown]
  - Therapeutic response shortened [Unknown]

NARRATIVE: CASE EVENT DATE: 20210101
